FAERS Safety Report 23072539 (Version 1)
Quarter: 2023Q4

REPORT INFORMATION
  Report Type: Spontaneous
  Country: GB (occurrence: None)
  Receive Date: 20231017
  Receipt Date: 20231017
  Transmission Date: 20240110
  Serious: Yes (Other)
  Sender: FDA-Public Use
  Company Number: GB-ROCHE-3438722

PATIENT

DRUGS (1)
  1. HEMLIBRA [Suspect]
     Active Substance: EMICIZUMAB-KXWH
     Indication: Product used for unknown indication
     Route: 065
     Dates: start: 20200224, end: 20221222

REACTIONS (3)
  - Mitral valve repair [Unknown]
  - Atrial fibrillation [Unknown]
  - Atrial thrombosis [Unknown]
